FAERS Safety Report 21656187 (Version 1)
Quarter: 2022Q4

REPORT INFORMATION
  Report Type: Spontaneous
  Country: US (occurrence: None)
  Receive Date: 20221128
  Receipt Date: 20221128
  Transmission Date: 20230112
  Serious: Yes (Death)
  Sender: FDA-Public Use
  Company Number: None

PATIENT
  Age: 68 Year
  Sex: Female

DRUGS (9)
  1. MYCOPHENOLIC ACID [Suspect]
     Active Substance: MYCOPHENOLIC ACID
     Indication: Dermatomyositis
     Dosage: 2.5 ML BID PEG TUBE?
     Route: 065
     Dates: start: 20221014
  2. ATORVASTATIN [Concomitant]
  3. CLOPIDOGREL [Concomitant]
  4. DOXAZOSIN [Concomitant]
  5. FOLIC ACID [Concomitant]
  6. NORCO [Concomitant]
  7. LEVETIRACETAM [Concomitant]
  8. METORPOLOL SUCC [Concomitant]
  9. VERAPAMIL [Concomitant]
     Active Substance: VERAPAMIL HYDROCHLORIDE

REACTIONS (1)
  - General physical health deterioration [None]

NARRATIVE: CASE EVENT DATE: 20221127
